FAERS Safety Report 9385668 (Version 1)
Quarter: 2013Q3

REPORT INFORMATION
  Report Type: Spontaneous
  Country: CN (occurrence: CN)
  Receive Date: 20130705
  Receipt Date: 20130705
  Transmission Date: 20140515
  Serious: Yes (Other)
  Sender: FDA-Public Use
  Company Number: CN-GLAXOSMITHKLINE-B0905152A

PATIENT
  Age: 65 Year
  Sex: Female
  Weight: 53 kg

DRUGS (2)
  1. BACTROBAN [Suspect]
     Indication: CELLULITIS
     Dosage: .5G THREE TIMES PER DAY
     Route: 061
     Dates: start: 20120907, end: 20120908
  2. INFUSION FLUID [Concomitant]

REACTIONS (4)
  - Application site pruritus [Recovering/Resolving]
  - Rash maculo-papular [Recovering/Resolving]
  - Application site vesicles [Recovering/Resolving]
  - Application site exfoliation [Recovering/Resolving]
